FAERS Safety Report 6093475-6 (Version None)
Quarter: 2009Q1

REPORT INFORMATION
  Report Type: 
  Country: None (occurrence: None)
  Receive Date: 20090219
  Receipt Date: 20081201
  Transmission Date: 20090719
  Serious: No
  Sender: FDA-Public Use
  Company Number: WAES 0812USA00353

PATIENT
  Age: 64 Year
  Sex: Male

DRUGS (7)
  1. JANUVIA [Suspect]
     Indication: TYPE 2 DIABETES MELLITUS
     Dosage: 100 MG/DAILY/PO
     Route: 048
     Dates: start: 20080830
  2. CLINORIL [Concomitant]
  3. FLOMAX (MORNIFLUMATE) [Concomitant]
  4. LASIX [Concomitant]
  5. GLIMEPIRIDE [Concomitant]
  6. IBUPROFEN [Concomitant]
  7. METFORMIN HCL [Concomitant]

REACTIONS (2)
  - DEPRESSION [None]
  - MOOD SWINGS [None]
